FAERS Safety Report 5600995-4 (Version None)
Quarter: 2008Q1

REPORT INFORMATION
  Report Type: 
  Country: None (occurrence: None)
  Receive Date: 20080124
  Receipt Date: 20080117
  Transmission Date: 20080703
  Serious: Yes (Hospitalization, Other)
  Sender: FDA-Public Use
  Company Number: FR-ALLERGAN-0800384US

PATIENT
  Sex: Female

DRUGS (3)
  1. LUMIGAN [Suspect]
     Indication: OCULAR HYPERTENSION
     Route: 047
  2. DIAMOX SRC [Suspect]
     Indication: OCULAR HYPERTENSION
     Route: 048
  3. COSOPT [Concomitant]
     Indication: OCULAR HYPERTENSION
     Route: 047

REACTIONS (3)
  - BLOOD PRESSURE INCREASED [None]
  - HYPERGLYCAEMIA [None]
  - NEPHROPATHY [None]
